FAERS Safety Report 7019211-4 (Version None)
Quarter: 2010Q3

REPORT INFORMATION
  Report Type: 
  Country: None (occurrence: None)
  Receive Date: 20100928
  Receipt Date: 20100921
  Transmission Date: 20110219
  Serious: Yes (Other)
  Sender: FDA-Public Use
  Company Number: US-AMGEN-QUU422561

PATIENT
  Sex: Male
  Weight: 88.1 kg

DRUGS (7)
  1. NPLATE [Suspect]
     Indication: IDIOPATHIC THROMBOCYTOPENIC PURPURA
     Route: 058
     Dates: start: 20090422, end: 20090902
  2. ZOCOR [Concomitant]
  3. ALTACE [Concomitant]
  4. DIGITEK [Concomitant]
  5. PACERONE (UPSHER-SMITH LAB) [Concomitant]
  6. AVACORE [Concomitant]
  7. TORSEMIDE [Concomitant]

REACTIONS (1)
  - DIABETES MELLITUS [None]
